FAERS Safety Report 5234107-6 (Version None)
Quarter: 2007Q1

REPORT INFORMATION
  Report Type: 
  Country: None (occurrence: None)
  Receive Date: 20070208
  Receipt Date: 20070129
  Transmission Date: 20070707
  Serious: Yes (Other)
  Sender: FDA-Public Use
  Company Number: JP-PFIZER INC-2007008530

PATIENT
  Age: 80 Year
  Sex: Female

DRUGS (4)
  1. LIPITOR [Suspect]
     Dosage: DAILY DOSE:10MG
     Route: 048
     Dates: start: 20060906, end: 20061201
  2. LASIX [Concomitant]
  3. SPIRONOLACTONE [Concomitant]
     Route: 048
  4. CONSTAN [Concomitant]
     Route: 048

REACTIONS (3)
  - DIZZINESS [None]
  - FEELING COLD [None]
  - LIVER DISORDER [None]
